FAERS Safety Report 4451944-6 (Version None)
Quarter: 2004Q3

REPORT INFORMATION
  Report Type: 
  Country: None (occurrence: None)
  Receive Date: 20040913
  Receipt Date: 20040715
  Transmission Date: 20050211
  Serious: No
  Sender: FDA-Public Use
  Company Number: 2004-BP-05791BP(0)

PATIENT
  Sex: Male

DRUGS (1)
  1. SPIRIVA [Suspect]
     Indication: CHRONIC OBSTRUCTIVE AIRWAYS DISEASE
     Dosage: 18 MCG, (18 MCG), IH
     Route: 055
     Dates: start: 20040712, end: 20040713

REACTIONS (2)
  - SWELLING FACE [None]
  - THROAT TIGHTNESS [None]
